FAERS Safety Report 20406125 (Version 2)
Quarter: 2022Q1

REPORT INFORMATION
  Report Type: Report from Study
  Country: MX (occurrence: MX)
  Receive Date: 20220131
  Receipt Date: 20220330
  Transmission Date: 20220423
  Serious: Yes (Life-Threatening, Hospitalization, Other)
  Sender: FDA-Public Use
  Company Number: MX-GLAXOSMITHKLINE-MX2021196576

PATIENT
  Age: 76 Year
  Sex: Male
  Weight: 84 kg

DRUGS (14)
  1. PLACEBO [Suspect]
     Active Substance: UNSPECIFIED INGREDIENT
     Indication: Non-small cell lung cancer
     Dosage: DOSE AT CYCLE 1 - DAY 1
     Dates: start: 20210830, end: 20210912
  2. PEMBROLIZUMAB [Suspect]
     Active Substance: PEMBROLIZUMAB
     Indication: Non-small cell lung cancer
     Dosage: DOSE AT CYCLE 1 - DAY 1
     Route: 042
     Dates: start: 20210830, end: 20210830
  3. FOLIC ACID [Concomitant]
     Active Substance: FOLIC ACID
     Indication: Anaemia
     Dosage: 5 MG (FREQUENCY = ONCE DAILY)
     Route: 048
     Dates: start: 20210415, end: 20210916
  4. IRBESARTAN [Concomitant]
     Active Substance: IRBESARTAN
     Indication: Hypertension
     Dosage: 300 MG (FREQUENCY = TWICE DAILY)
     Route: 048
     Dates: start: 20100815
  5. AMLODIPINE BESYLATE [Concomitant]
     Active Substance: AMLODIPINE BESYLATE
     Indication: Hypertension
     Dosage: 5 MG (FREQUENCY = ONCE DAILY)
     Route: 048
     Dates: start: 20100815
  6. AMLODIPINE BESYLATE [Concomitant]
     Active Substance: AMLODIPINE BESYLATE
     Dosage: 5 MG, BID
     Route: 048
  7. ASPIRIN [Concomitant]
     Active Substance: ASPIRIN
     Indication: Hypertension
     Dosage: 100 MG (FREQUENCY = ONCE DAILY)
     Route: 048
     Dates: start: 20100815
  8. EZETIMIBE [Concomitant]
     Active Substance: EZETIMIBE
     Indication: Dyslipidaemia
     Dosage: 10 MG (FREQUENCY = OTHER: 3 TIMES PER WEEK)
     Route: 048
     Dates: start: 20100815
  9. SIMVASTATIN [Concomitant]
     Active Substance: SIMVASTATIN
     Indication: Dyslipidaemia
     Dosage: 20 MG (FREQUENCY = OTHER: 3 TIMES PER WEEK)
     Route: 048
     Dates: start: 20100815
  10. CIPROFIBRATE [Concomitant]
     Active Substance: CIPROFIBRATE
     Indication: Dyslipidaemia
     Dosage: 100 MG (FREQUENCY = EVERY WEEK)
     Route: 048
     Dates: start: 20100815
  11. CARVEDILOL [Concomitant]
     Active Substance: CARVEDILOL
     Dosage: UNK
     Dates: start: 20100815, end: 20210912
  12. CARVEDILOL [Concomitant]
     Active Substance: CARVEDILOL
     Dosage: 25 MG, BID
     Route: 048
  13. ACETAMINOPHEN [Concomitant]
     Active Substance: ACETAMINOPHEN
     Dosage: 500 MG, TID-FOR 5 DAYS
     Route: 048
  14. SUPRADOL [Concomitant]
     Dosage: 10 MG, TID- 5 DAYS

REACTIONS (1)
  - Atrioventricular block complete [Recovered/Resolved]

NARRATIVE: CASE EVENT DATE: 20210915
